FAERS Safety Report 23990254 (Version 1)
Quarter: 2024Q2

REPORT INFORMATION
  Report Type: Spontaneous
  Country: CH (occurrence: CH)
  Receive Date: 20240619
  Receipt Date: 20240619
  Transmission Date: 20240716
  Serious: Yes (Hospitalization)
  Sender: FDA-Public Use
  Company Number: None

PATIENT
  Age: 75 Year
  Sex: Male

DRUGS (13)
  1. NUBEQA [Suspect]
     Active Substance: DAROLUTAMIDE
     Indication: Prostate cancer
     Dosage: 600 MG, BID
     Route: 048
     Dates: start: 20231221
  2. DOCETAXEL [Suspect]
     Active Substance: DOCETAXEL\DOCETAXEL ANHYDROUS
     Indication: Prostate cancer
     Dosage: 91 MG, Q2WK (CYCLE 1)
     Route: 042
     Dates: start: 20240223
  3. DOCETAXEL [Suspect]
     Active Substance: DOCETAXEL\DOCETAXEL ANHYDROUS
     Indication: Prostate cancer
     Dosage: CYCLE 2
  4. DOCETAXEL [Suspect]
     Active Substance: DOCETAXEL\DOCETAXEL ANHYDROUS
     Indication: Prostate cancer
     Dosage: CYCLE 3
  5. DOCETAXEL [Suspect]
     Active Substance: DOCETAXEL\DOCETAXEL ANHYDROUS
     Indication: Prostate cancer
     Dosage: CYCLE 4
     Dates: start: 20240404
  6. GOSERELIN [Suspect]
     Active Substance: GOSERELIN
     Indication: Prostate cancer
     Dosage: 1 DF, Q3WK
     Route: 058
     Dates: start: 20230810
  7. GOSERELIN [Suspect]
     Active Substance: GOSERELIN
     Indication: Prostate cancer
     Dosage: 1 DF, Q3WK
     Route: 058
     Dates: start: 20231110
  8. GOSERELIN [Suspect]
     Active Substance: GOSERELIN
     Indication: Prostate cancer
     Dosage: 1 DF, Q3WK
     Route: 058
     Dates: start: 20240223
  9. CASODEX [Suspect]
     Active Substance: BICALUTAMIDE
     Dosage: 50 MG, QD
     Route: 048
     Dates: start: 20231107
  10. DENOSUMAB [Suspect]
     Active Substance: DENOSUMAB
     Dosage: 1 DF, Q4WK
     Route: 058
     Dates: start: 20240321
  11. ENALAPRIL [Suspect]
     Active Substance: ENALAPRIL
     Dosage: 20 MG, QD
     Route: 048
  12. TAMSULOSIN HYDROCHLORIDE [Suspect]
     Active Substance: TAMSULOSIN HYDROCHLORIDE
     Dosage: 0.4 MG, QD
     Route: 048
  13. PANTOZOL [Suspect]
     Active Substance: PANTOPRAZOLE SODIUM
     Dosage: 40 MG, QD
     Route: 048

REACTIONS (5)
  - Lupus-like syndrome [Recovering/Resolving]
  - Febrile infection [Recovering/Resolving]
  - Swelling face [Recovering/Resolving]
  - Flushing [None]
  - Urinary tract infection [None]

NARRATIVE: CASE EVENT DATE: 20240401
